FAERS Safety Report 9275913 (Version 1)
Quarter: 2013Q2

REPORT INFORMATION
  Report Type: Spontaneous
  Country: US (occurrence: US)
  Receive Date: 20130507
  Receipt Date: 20130507
  Transmission Date: 20140414
  Serious: No
  Sender: FDA-Public Use
  Company Number: US-009507513-1304USA017340

PATIENT
  Sex: 0

DRUGS (3)
  1. DULERA [Suspect]
     Dosage: UNK
     Route: 055
  2. SINGULAIR [Concomitant]
     Route: 048
  3. DALIRESP [Concomitant]

REACTIONS (2)
  - Suicidal ideation [Unknown]
  - Depression [Unknown]
